FAERS Safety Report 11939248 (Version 2)
Quarter: 2016Q1

REPORT INFORMATION
  Report Type: Spontaneous
  Country: US (occurrence: US)
  Receive Date: 20160122
  Receipt Date: 20160307
  Transmission Date: 20160526
  Serious: No
  Sender: FDA-Public Use
  Company Number: US-LEO PHARMA-239686

PATIENT
  Age: 60 Year
  Sex: Female

DRUGS (1)
  1. PICATO [Suspect]
     Active Substance: INGENOL MEBUTATE
     Indication: ACTINIC KERATOSIS
     Route: 061
     Dates: start: 20160114, end: 20160114

REACTIONS (13)
  - Pain in jaw [Not Recovered/Not Resolved]
  - Application site swelling [Recovered/Resolved]
  - Incorrect drug administration duration [Unknown]
  - Stomatitis [Recovering/Resolving]
  - Swelling face [Recovered/Resolved]
  - Application site exfoliation [Recovered/Resolved]
  - Ear pain [Not Recovered/Not Resolved]
  - Aphthous ulcer [Recovered/Resolved]
  - Eye swelling [Recovered/Resolved]
  - Application site vesicles [Recovered/Resolved]
  - Application site erosion [Recovered/Resolved]
  - Application site pain [Recovered/Resolved]
  - Application site erythema [Recovered/Resolved]

NARRATIVE: CASE EVENT DATE: 20160114
